FAERS Safety Report 4579720-4 (Version None)
Quarter: 2005Q1

REPORT INFORMATION
  Report Type: 
  Country: None (occurrence: None)
  Receive Date: 20050210
  Receipt Date: 20050126
  Transmission Date: 20050727
  Serious: Yes (Death)
  Sender: FDA-Public Use
  Company Number: 2004AL000727

PATIENT
  Age: 40 Year
  Sex: Female

DRUGS (8)
  1. TRAMADOL HCL [Suspect]
     Dosage: PO
     Route: 048
  2. HYDRAMINE [Suspect]
     Dosage: PO
     Route: 048
  3. HYDRAMINE [Suspect]
     Dosage: PO
     Route: 048
  4. THIOTHIXENE [Concomitant]
  5. VALPROIC ACID [Concomitant]
  6. CLONAZEPAM [Concomitant]
  7. QUETIAPINE [Concomitant]
  8. TRIHEXPHENIDYL [Concomitant]

REACTIONS (13)
  - ACIDOSIS [None]
  - ACUTE RESPIRATORY DISTRESS SYNDROME [None]
  - COMPLETED SUICIDE [None]
  - DEHYDRATION [None]
  - DRUG TOXICITY [None]
  - ECCHYMOSIS [None]
  - HYPOTENSION [None]
  - HYPOXIA [None]
  - LOSS OF CONSCIOUSNESS [None]
  - LUNG INFILTRATION [None]
  - MULTIPLE DRUG OVERDOSE [None]
  - RHABDOMYOLYSIS [None]
  - SEPSIS [None]
